FAERS Safety Report 15139732 (Version 1)
Quarter: 2018Q3

REPORT INFORMATION
  Report Type: Spontaneous
  Country: US (occurrence: US)
  Receive Date: 20180618
  Receipt Date: 20180618
  Transmission Date: 20181010
  Serious: Yes (Other)
  Sender: FDA-Public Use
  Company Number: None

PATIENT
  Age: 70 Year
  Sex: Male
  Weight: 82.9 kg

DRUGS (1)
  1. LEUCOVORIN. [Suspect]
     Active Substance: LEUCOVORIN
     Indication: RECTAL CANCER
     Route: 041
     Dates: start: 20160411, end: 20180604

REACTIONS (3)
  - Cough [None]
  - Swelling face [None]
  - Erythema [None]

NARRATIVE: CASE EVENT DATE: 20180604
